FAERS Safety Report 17797938 (Version 3)
Quarter: 2021Q4

REPORT INFORMATION
  Report Type: Spontaneous
  Country: US (occurrence: US)
  Receive Date: 20200518
  Receipt Date: 20211008
  Transmission Date: 20220303
  Serious: No
  Sender: FDA-Public Use
  Company Number: US-PFIZER INC-2018431288

PATIENT
  Age: 58 Year
  Sex: Female

DRUGS (1)
  1. LYRICA [Suspect]
     Active Substance: PREGABALIN
     Dosage: 200 MG, 3X/DAY

REACTIONS (3)
  - Product prescribing error [Unknown]
  - Withdrawal syndrome [Unknown]
  - Affective disorder [Unknown]
